FAERS Safety Report 4515367-3 (Version None)
Quarter: 2004Q4

REPORT INFORMATION
  Report Type: 
  Country: None (occurrence: None)
  Receive Date: 20041129
  Receipt Date: 20040830
  Transmission Date: 20050328
  Serious: No
  Sender: FDA-Public Use
  Company Number: 200416509US

PATIENT
  Age: 80 Year
  Sex: Male

DRUGS (1)
  1. TELITHROMYCIN (KETEK) TABLETS [Suspect]
     Indication: PNEUMONIA
     Dosage: 400 MG BID PO
     Route: 048
     Dates: start: 20040810, end: 20040820

REACTIONS (1)
  - RASH MACULO-PAPULAR [None]
